FAERS Safety Report 7430570-0 (Version None)
Quarter: 2011Q2

REPORT INFORMATION
  Report Type: 
  Country: None (occurrence: None)
  Receive Date: 20110421
  Receipt Date: 20100517
  Transmission Date: 20111010
  Serious: No
  Sender: FDA-Public Use
  Company Number: US-ASTRAZENECA-2010SE22526

PATIENT
  Age: 70 Year
  Sex: Female
  Weight: 56.7 kg

DRUGS (3)
  1. METOPROLOL SUCCINATE [Suspect]
     Indication: HYPERTENSION
     Route: 048
     Dates: start: 20050101
  2. NEXIUM [Concomitant]
  3. VALIUM [Concomitant]

REACTIONS (3)
  - FATIGUE [None]
  - DECREASED APPETITE [None]
  - DYSGEUSIA [None]
